FAERS Safety Report 4574787-1 (Version None)
Quarter: 2005Q1

REPORT INFORMATION
  Report Type: 
  Country: None (occurrence: None)
  Receive Date: 20050208
  Receipt Date: 20040628
  Transmission Date: 20050727
  Serious: No
  Sender: FDA-Public Use
  Company Number: US-GLAXOSMITHKLINE-A0516199A

PATIENT
  Sex: Female

DRUGS (1)
  1. PAXIL CR [Suspect]
     Dosage: 12.5MG SEE DOSAGE TEXT
     Route: 048
     Dates: start: 20040501

REACTIONS (6)
  - BRUXISM [None]
  - CONSTIPATION [None]
  - DECREASED APPETITE [None]
  - HUNGER [None]
  - MUSCULAR WEAKNESS [None]
  - POLLAKIURIA [None]
